FAERS Safety Report 15542312 (Version 1)
Quarter: 2018Q4

REPORT INFORMATION
  Report Type: Spontaneous
  Country: FR (occurrence: FR)
  Receive Date: 20181023
  Receipt Date: 20181023
  Transmission Date: 20190205
  Serious: Yes (Hospitalization, Other)
  Sender: FDA-Public Use
  Company Number: FR-PFIZER INC-2018418215

PATIENT
  Age: 59 Year
  Sex: Male
  Weight: 71 kg

DRUGS (10)
  1. ALIROCUMAB [Suspect]
     Active Substance: ALIROCUMAB
     Indication: HYPERCHOLESTEROLAEMIA
     Dosage: 1 ML, UNK (QOW)
     Route: 058
     Dates: start: 20160126, end: 20180506
  2. PARACETAMOL [Concomitant]
     Active Substance: ACETAMINOPHEN
     Indication: PAIN
     Dosage: 1 G, AS NEEDED (PRN)
     Route: 048
     Dates: start: 20160613
  3. RANITIDINE. [Concomitant]
     Active Substance: RANITIDINE
     Indication: PROPHYLAXIS
     Dosage: 300 MG, DAILY (QD)
     Route: 048
     Dates: start: 20170612
  4. IMOVANE [Concomitant]
     Active Substance: ZOPICLONE
     Dosage: 3.75 MG, DAILY (QD)
     Route: 048
     Dates: start: 201704
  5. OMACOR [Concomitant]
     Active Substance: OMEGA-3-ACID ETHYL ESTERS
     Indication: CORONARY ARTERY DISEASE
     Dosage: 1 DF, DAILY (QD)
     Route: 048
     Dates: start: 2007
  6. ATORVASTATIN CALCIUM. [Suspect]
     Active Substance: ATORVASTATIN CALCIUM
     Indication: HYPERCHOLESTEROLAEMIA
     Dosage: 20 MG, DAILY (QD)
     Route: 048
     Dates: start: 20151203
  7. ALIROCUMAB [Suspect]
     Active Substance: ALIROCUMAB
     Indication: HYPERCHOLESTEROLAEMIA
     Dosage: 1 ML, UNK (QOW, PREFILLED PEN)
     Route: 058
     Dates: start: 20160126, end: 20180506
  8. PLAVIX [Concomitant]
     Active Substance: CLOPIDOGREL BISULFATE
     Indication: ISCHAEMIA
     Dosage: 75 MG, DAILY (QD)
     Route: 048
     Dates: start: 20160613
  9. COVERSYL [PERINDOPRIL ARGININE] [Concomitant]
     Indication: HYPERTENSION
     Dosage: 5 MG, DAILY (QD)
     Route: 048
     Dates: start: 2007
  10. SECTRAL [Concomitant]
     Active Substance: ACEBUTOLOL HYDROCHLORIDE
     Indication: MYOCARDIAL ISCHAEMIA
     Dosage: 100 MG, DAILY (QD)
     Route: 048
     Dates: start: 20151203

REACTIONS (3)
  - Lung adenocarcinoma [Not Recovered/Not Resolved]
  - Chondrocalcinosis [Not Recovered/Not Resolved]
  - Haemoptysis [Not Recovered/Not Resolved]

NARRATIVE: CASE EVENT DATE: 201803
